FAERS Safety Report 20331548 (Version 2)
Quarter: 2022Q1

REPORT INFORMATION
  Report Type: Spontaneous
  Country: US (occurrence: US)
  Receive Date: 20220113
  Receipt Date: 20220208
  Transmission Date: 20220424
  Serious: No
  Sender: FDA-Public Use
  Company Number: US-ORGANON-O2201USA000703

PATIENT
  Age: 40 Year
  Sex: Female
  Weight: 77.098 kg

DRUGS (1)
  1. NUVARING [Suspect]
     Active Substance: ETHINYL ESTRADIOL\ETONOGESTREL
     Indication: Contraception
     Dosage: 1 RING FOR THREE WEEKS
     Route: 067
     Dates: start: 20220106

REACTIONS (2)
  - Poor quality device used [Unknown]
  - Product packaging issue [Unknown]

NARRATIVE: CASE EVENT DATE: 20220105
